FAERS Safety Report 7717712-4 (Version None)
Quarter: 2011Q3

REPORT INFORMATION
  Report Type: 
  Country: None (occurrence: None)
  Receive Date: 20110830
  Receipt Date: 20110822
  Transmission Date: 20111222
  Serious: Yes (Hospitalization)
  Sender: FDA-Public Use
  Company Number: CA-JNJFOC-20110810939

PATIENT
  Sex: Male
  Weight: 54.5 kg

DRUGS (3)
  1. REMICADE [Suspect]
     Indication: COLITIS ULCERATIVE
     Route: 042
     Dates: start: 20110405
  2. REMICADE [Suspect]
     Route: 042
     Dates: start: 20110712
  3. PREDNISONE [Concomitant]
     Dosage: BEING TAPERED
     Dates: start: 20110701

REACTIONS (1)
  - COLITIS ULCERATIVE [None]
